FAERS Safety Report 9158665 (Version 2)
Quarter: 2013Q2

REPORT INFORMATION
  Report Type: Report from Study
  Country: IT (occurrence: IT)
  Receive Date: 20130312
  Receipt Date: 20130625
  Transmission Date: 20140414
  Serious: Yes (Hospitalization)
  Sender: FDA-Public Use
  Company Number: IT-CELGENEUS-083-21880-13030659

PATIENT
  Age: 75 Year
  Sex: Male
  Weight: 80 kg

DRUGS (8)
  1. REVLIMID [Suspect]
     Indication: PLASMA CELL MYELOMA
     Dosage: 25 MILLIGRAM
     Route: 048
     Dates: start: 20100312, end: 20100401
  2. REVLIMID [Suspect]
     Route: 048
     Dates: start: 20101122, end: 20101213
  3. DEXAMETHASONE [Suspect]
     Indication: PLASMA CELL MYELOMA
     Route: 048
     Dates: start: 20100312, end: 20100408
  4. DEXAMETHASONE [Suspect]
     Route: 048
     Dates: start: 20100413, end: 20100510
  5. DEXAMETHASONE [Suspect]
     Dosage: 5.3333 MILLIGRAM
     Route: 048
     Dates: start: 20101122, end: 20101220
  6. LEVODOPA BENSERAZIDE [Concomitant]
     Indication: PARKINSONISM
     Dosage: 200 MILLIGRAM
     Route: 065
     Dates: start: 200912
  7. PRAMIPEXOLO [Concomitant]
     Indication: PARKINSONISM
     Dosage: .18 MILLIGRAM
     Route: 065
     Dates: start: 200912
  8. ETIZOLAM [Concomitant]
     Indication: PARKINSONISM
     Dosage: 1 MILLIGRAM
     Route: 065
     Dates: start: 200912

REACTIONS (1)
  - Salivary gland cancer [Not Recovered/Not Resolved]
